FAERS Safety Report 22385086 (Version 1)
Quarter: 2023Q2

REPORT INFORMATION
  Report Type: Spontaneous
  Country: CA (occurrence: CA)
  Receive Date: 20230530
  Receipt Date: 20230530
  Transmission Date: 20230722
  Serious: Yes (Other)
  Sender: FDA-Public Use
  Company Number: CA-GLAXOSMITHKLINE-CA2023AMR076017

PATIENT

DRUGS (1)
  1. BENLYSTA [Suspect]
     Active Substance: BELIMUMAB
     Indication: Systemic lupus erythematosus
     Dosage: UNK

REACTIONS (8)
  - Systemic lupus erythematosus [Unknown]
  - Pain [Unknown]
  - Fatigue [Unknown]
  - Mobility decreased [Unknown]
  - Illness [Unknown]
  - Condition aggravated [Unknown]
  - Product dose omission issue [Unknown]
  - Product availability issue [Unknown]
